FAERS Safety Report 5905043-4 (Version None)
Quarter: 2008Q4

REPORT INFORMATION
  Report Type: 
  Country: None (occurrence: None)
  Receive Date: 20081001
  Receipt Date: 20080924
  Transmission Date: 20090506
  Serious: Yes (Hospitalization)
  Sender: FDA-Public Use
  Company Number: GB-AMGEN-UK309853

PATIENT
  Age: 11 Year
  Sex: Female

DRUGS (10)
  1. KINERET [Suspect]
     Indication: DRUG USE FOR UNKNOWN INDICATION
     Route: 058
  2. THALIDOMIDE [Suspect]
     Route: 048
     Dates: start: 20080404, end: 20080415
  3. ACRIVASTINE [Concomitant]
  4. CEFTRIAXONE [Concomitant]
     Route: 042
  5. HYDROXYZINE [Concomitant]
  6. IBUPROFEN [Concomitant]
     Dates: start: 20070424
  7. METHOTREXATE [Concomitant]
     Dates: end: 20080314
  8. NAPROXEN [Concomitant]
     Dates: start: 20070507
  9. PREDNISOLONE [Concomitant]
     Dates: start: 20070507
  10. CETIRIZINE HCL [Concomitant]

REACTIONS (5)
  - ARTHRITIS [None]
  - HISTIOCYTOSIS HAEMATOPHAGIC [None]
  - INFLAMMATION [None]
  - RASH ERYTHEMATOUS [None]
  - RESPIRATORY DISORDER [None]
